FAERS Safety Report 21083279 (Version 3)
Quarter: 2022Q3

REPORT INFORMATION
  Report Type: Spontaneous
  Country: AU (occurrence: AU)
  Receive Date: 20220714
  Receipt Date: 20220728
  Transmission Date: 20221026
  Serious: Yes (Hospitalization)
  Sender: FDA-Public Use
  Company Number: AU-PFIZER INC-PV202200021529

PATIENT
  Sex: Female

DRUGS (2)
  1. DETRUSITOL [Suspect]
     Active Substance: TOLTERODINE TARTRATE
     Dosage: 1 MG
  2. DETRUSITOL [Suspect]
     Active Substance: TOLTERODINE TARTRATE
     Dosage: 2 MG

REACTIONS (4)
  - Abdominal pain upper [Unknown]
  - Bladder pain [Unknown]
  - Incorrect dose administered [Unknown]
  - Product commingling [Unknown]
